FAERS Safety Report 5813782-9 (Version None)
Quarter: 2008Q3

REPORT INFORMATION
  Report Type: 
  Country: None (occurrence: None)
  Receive Date: 20080717
  Receipt Date: 20080709
  Transmission Date: 20090109
  Serious: Yes (Other)
  Sender: FDA-Public Use
  Company Number: PHHY2008BR13877

PATIENT

DRUGS (3)
  1. FORASEQ [Suspect]
     Indication: ASTHMA
     Dosage: BOTH CAPSULE Q12H
     Dates: start: 20050101
  2. COMBIVENT [Concomitant]
     Indication: ASTHMA
     Dosage: 6 INHALATION PER DAY
     Dates: start: 20050101
  3. COMBIVENT [Concomitant]
     Indication: EMPHYSEMA

REACTIONS (3)
  - BACK PAIN [None]
  - ECHOGRAPHY ABNORMAL [None]
  - HEPATIC NEOPLASM [None]
